FAERS Safety Report 5025989-1 (Version None)
Quarter: 2006Q2

REPORT INFORMATION
  Report Type: 
  Country: None (occurrence: None)
  Receive Date: 20060427
  Receipt Date: 20051019
  Transmission Date: 20061013
  Serious: Yes (Life-Threatening, Hospitalization)
  Sender: FDA-Public Use
  Company Number: 2005125006

PATIENT
  Age: 9 Year
  Sex: Male

DRUGS (4)
  1. ZITHROMAX [Suspect]
     Indication: UPPER RESPIRATORY TRACT INFECTION
     Dosage: SEE IMAGE
     Route: 048
     Dates: start: 20020918, end: 20020918
  2. ZITHROMAX [Suspect]
     Indication: UPPER RESPIRATORY TRACT INFECTION
     Dosage: SEE IMAGE
     Route: 048
     Dates: start: 20020919
  3. ACETAMINOPHEN [Concomitant]
  4. ACETAMINOPHEN [Concomitant]

REACTIONS (1)
  - STEVENS-JOHNSON SYNDROME [None]
